FAERS Safety Report 22116580 (Version 1)
Quarter: 2023Q1

REPORT INFORMATION
  Report Type: Spontaneous
  Country: US (occurrence: None)
  Receive Date: 20230320
  Receipt Date: 20230320
  Transmission Date: 20230418
  Serious: Yes (Life-Threatening, Hospitalization)
  Sender: FDA-Public Use
  Company Number: None

PATIENT
  Age: 20 Year
  Sex: Female
  Weight: 72 kg

DRUGS (1)
  1. ROBOTABLETS [Suspect]
     Active Substance: DEXTROMETHORPHAN
     Indication: Drug abuse
     Dosage: OTHER QUANTITY : 100 TABLET(S);?FREQUENCY : TWICE A DAY;?
     Route: 048
     Dates: start: 20220601, end: 20230225

REACTIONS (10)
  - Intentional product misuse [None]
  - Euphoric mood [None]
  - Fall [None]
  - Disorientation [None]
  - Psychotic disorder [None]
  - Aggression [None]
  - Abnormal behaviour [None]
  - Heart rate increased [None]
  - Unresponsive to stimuli [None]
  - Drug monitoring procedure not performed [None]

NARRATIVE: CASE EVENT DATE: 20230225
